FAERS Safety Report 17557018 (Version 4)
Quarter: 2022Q4

REPORT INFORMATION
  Report Type: Spontaneous
  Country: US (occurrence: US)
  Receive Date: 20200318
  Receipt Date: 20221003
  Transmission Date: 20230112
  Serious: Yes (Other)
  Sender: FDA-Public Use
  Company Number: US-ALLERGAN-2011746US

PATIENT
  Sex: Female
  Weight: 54.48 kg

DRUGS (33)
  1. VRAYLAR [Suspect]
     Active Substance: CARIPRAZINE
     Indication: Hallucination
     Dosage: UNK
     Dates: start: 2020, end: 2020
  2. DUOPA [Suspect]
     Active Substance: CARBIDOPA\LEVODOPA
     Indication: Parkinson^s disease
     Dosage: VIA PERCUTANEOUS J-TUBE, USING ONLY AT NIGHT
     Dates: start: 20200302
  3. DUOPA [Suspect]
     Active Substance: CARBIDOPA\LEVODOPA
     Dosage: VIA PERCUTANEOUS J-TUBE
     Dates: start: 20190318, end: 20200214
  4. SUNOSI [Suspect]
     Active Substance: SOLRIAMFETOL
     Indication: Product used for unknown indication
     Dosage: UNK
     Dates: start: 2020, end: 2020
  5. SINEMET [Concomitant]
     Active Substance: CARBIDOPA\LEVODOPA
     Dosage: 25-100 MILIGRAMS
     Route: 048
  6. MIDODRINE [Concomitant]
     Active Substance: MIDODRINE
     Dosage: 5 MG, TID
     Route: 048
  7. MIDODRINE [Concomitant]
     Active Substance: MIDODRINE
     Dosage: 2.5 MG, QD
     Route: 048
  8. MESTINON [Concomitant]
     Active Substance: PYRIDOSTIGMINE BROMIDE
     Dosage: 60 MG, TID
     Route: 048
  9. FLUDROCORTISONE [Concomitant]
     Active Substance: FLUDROCORTISONE
     Dosage: 0.1 MG, QD
     Route: 048
  10. LOSARTAN [Concomitant]
     Active Substance: LOSARTAN
     Dosage: UNK
     Route: 062
  11. FLUOXETINE HYDROCHLORIDE [Concomitant]
     Active Substance: FLUOXETINE HYDROCHLORIDE
     Dosage: UNK
  12. LIPITOR [Concomitant]
     Active Substance: ATORVASTATIN CALCIUM
     Dosage: 20 MG, QHS
     Route: 048
  13. ZOLOFT [Concomitant]
     Active Substance: SERTRALINE HYDROCHLORIDE
     Dosage: 50 MG, QHS
     Route: 048
  14. NUPLAZID [Concomitant]
     Active Substance: PIMAVANSERIN TARTRATE
     Dosage: 34 MG, QD
     Route: 048
  15. CLONAZEPAM [Concomitant]
     Active Substance: CLONAZEPAM
     Dosage: 1 MG, QD
     Route: 048
  16. VITAMIN B COMPLEX [Concomitant]
     Active Substance: CYANOCOBALAMIN\DEXPANTHENOL\NIACINAMIDE\PYRIDOXINE HYDROCHLORIDE\RIBOFLAVIN 5^-PHOSPHATE SODIUM\THIA
     Dosage: UNK
  17. VITAMIN D2 [Concomitant]
     Active Substance: ERGOCALCIFEROL
     Dosage: 2000 UNITS, QD
     Route: 048
  18. XANAX [Concomitant]
     Active Substance: ALPRAZOLAM
     Dosage: UNK
  19. ALIGN [Concomitant]
     Active Substance: BIFIDOBACTERIUM LONGUM SUBSP. INFANTIS
     Dosage: UNK
  20. DULCOLAX NOS [Concomitant]
     Active Substance: BISACODYL OR DOCUSATE SODIUM
     Dosage: 10 MG
     Route: 054
  21. ATROPINE SULFATE [Concomitant]
     Active Substance: ATROPINE SULFATE
     Dosage: UNK
  22. DICYCLOMINE [Concomitant]
     Active Substance: DICYCLOMINE HYDROCHLORIDE
     Dosage: UNK
  23. QUETIAPINE [Concomitant]
     Active Substance: QUETIAPINE
     Dosage: 25 MG, QHS
     Route: 048
  24. SODIUM CHLORIDE [Concomitant]
     Active Substance: SODIUM CHLORIDE
     Dosage: 1 G, QD
     Route: 048
  25. CARBIDOPA, LEVODOPA AND ENTACAPONE [Concomitant]
     Active Substance: CARBIDOPA\ENTACAPONE\LEVODOPA
     Dosage: 25-100-200 MILLIGRAMS
     Route: 048
  26. VITAMIN B1 [Concomitant]
     Active Substance: THIAMINE HYDROCHLORIDE
     Dosage: 100 MG, QD
     Route: 048
  27. GABAPENTIN [Concomitant]
     Active Substance: GABAPENTIN
     Dosage: 100 MG, QD
     Route: 048
  28. OMEGA 3 [Concomitant]
     Active Substance: CAPSAICIN
     Dosage: 300-1000 MG, QD
     Route: 048
  29. PARCOPA [Concomitant]
     Active Substance: CARBIDOPA\LEVODOPA
     Indication: Parkinson^s disease
  30. STOOL SOFTENER LAXATIVE [Concomitant]
     Active Substance: DOCUSATE SODIUM
     Dosage: 8.6-50 MG DAILY
     Route: 048
  31. EXELON [Concomitant]
     Active Substance: RIVASTIGMINE TARTRATE
     Route: 062
  32. SERTRALINE [Concomitant]
     Active Substance: SERTRALINE HYDROCHLORIDE
  33. UNSPECIFIED INGREDIENT [Concomitant]
     Active Substance: UNSPECIFIED INGREDIENT
     Dosage: 15 MG, QD
     Route: 048

REACTIONS (14)
  - Coma [Recovered/Resolved]
  - Unresponsive to stimuli [Recovered/Resolved]
  - Depressed level of consciousness [Recovered/Resolved]
  - Hypertension [Recovered/Resolved]
  - Hypersensitivity [Recovering/Resolving]
  - Stoma site discharge [Recovering/Resolving]
  - Stoma site discomfort [Recovering/Resolving]
  - Parkinson^s disease [Unknown]
  - Product use in unapproved indication [Unknown]
  - Aphasia [Recovered/Resolved]
  - Urinary tract infection [Recovering/Resolving]
  - Somnolence [Recovered/Resolved]
  - Tremor [Unknown]
  - Dysphagia [Unknown]

NARRATIVE: CASE EVENT DATE: 20200101
